FAERS Safety Report 15127851 (Version 1)
Quarter: 2018Q3

REPORT INFORMATION
  Report Type: Spontaneous
  Country: PK (occurrence: PK)
  Receive Date: 20180710
  Receipt Date: 20180710
  Transmission Date: 20181010
  Serious: Yes (Other)
  Sender: FDA-Public Use
  Company Number: PK-AKRON, INC.-2051692

PATIENT
  Age: 29 Year
  Sex: Female
  Weight: 47 kg

DRUGS (7)
  1. CAPASTAT SULFATE [Suspect]
     Active Substance: CAPREOMYCIN SULFATE
     Route: 030
     Dates: start: 20170213, end: 20171021
  2. DELAMINID [Suspect]
     Active Substance: DELAMANID
     Route: 048
     Dates: start: 20171130
  3. BEDAQUILINE [Suspect]
     Active Substance: BEDAQUILINE
     Route: 048
     Dates: start: 20170213
  4. MOXIFLOXACIN. [Suspect]
     Active Substance: MOXIFLOXACIN
     Route: 048
     Dates: start: 20170213
  5. LINEZOLID. [Suspect]
     Active Substance: LINEZOLID
     Route: 048
     Dates: start: 20170213
  6. PAS [Suspect]
     Active Substance: AMINOSALICYLIC ACID
     Route: 048
     Dates: start: 20170213, end: 20170215
  7. CLOFAZIMINE [Suspect]
     Active Substance: CLOFAZIMINE
     Route: 048
     Dates: start: 20170213

REACTIONS (21)
  - Visual impairment [Unknown]
  - Anaemia [Recovered/Resolved]
  - Abdominal pain upper [None]
  - Ileal stenosis [None]
  - Alanine aminotransferase increased [None]
  - Diarrhoea [None]
  - Pericardial effusion [None]
  - Aspartate aminotransferase increased [None]
  - Lung consolidation [None]
  - Electrocardiogram QT prolonged [None]
  - Lymphadenopathy [None]
  - Vomiting [None]
  - Hepatomegaly [None]
  - Pulmonary pneumatocele [None]
  - Lung infection [None]
  - Blood potassium decreased [None]
  - Gastroenteritis [None]
  - Incorrect drug administration duration [None]
  - Large intestinal stenosis [None]
  - Pneumothorax [None]
  - Blood alkaline phosphatase increased [None]
